FAERS Safety Report 9668823 (Version 1)
Quarter: 2013Q4

REPORT INFORMATION
  Report Type: Spontaneous
  Country: US (occurrence: None)
  Receive Date: 20131104
  Receipt Date: 20131104
  Transmission Date: 20140711
  Serious: Yes (Disabling)
  Sender: FDA-Public Use
  Company Number: None

PATIENT
  Age: 58 Year
  Sex: Female

DRUGS (1)
  1. SEPTRA [Suspect]
     Indication: ANTIBIOTIC THERAPY
     Dates: start: 20131021, end: 20131028

REACTIONS (1)
  - Drug ineffective [None]
